FAERS Safety Report 12844995 (Version 1)
Quarter: 2016Q4

REPORT INFORMATION
  Report Type: Report from Study
  Country: CA (occurrence: CA)
  Receive Date: 20161013
  Receipt Date: 20161013
  Transmission Date: 20170207
  Serious: Yes (Hospitalization)
  Sender: FDA-Public Use
  Company Number: CA-TAKEDA-2016TUS014171

PATIENT
  Age: 18 Year
  Sex: Male

DRUGS (3)
  1. CALCIUM-VITAMIN D [Concomitant]
     Dosage: UNK
  2. VEDOLIZUMAB [Suspect]
     Active Substance: VEDOLIZUMAB
     Indication: COLITIS ULCERATIVE
     Dosage: 300 MG, UNK
     Route: 042
     Dates: start: 20160630, end: 20160811
  3. PREDNISONE. [Concomitant]
     Active Substance: PREDNISONE
     Dosage: 40 UNK, UNK
     Dates: start: 20160530

REACTIONS (9)
  - Colectomy total [Unknown]
  - Frequent bowel movements [Unknown]
  - Haematochezia [Recovered/Resolved]
  - Pyrexia [Recovered/Resolved]
  - Cough [Recovered/Resolved]
  - Colitis ulcerative [Not Recovered/Not Resolved]
  - Oropharyngeal pain [Recovered/Resolved]
  - Upper respiratory tract congestion [Recovered/Resolved]
  - Abdominal pain [Recovered/Resolved]

NARRATIVE: CASE EVENT DATE: 201607
